FAERS Safety Report 5655911-6 (Version None)
Quarter: 2008Q1

REPORT INFORMATION
  Report Type: 
  Country: None (occurrence: None)
  Receive Date: 20080307
  Receipt Date: 20080304
  Transmission Date: 20080703
  Serious: No
  Sender: FDA-Public Use
  Company Number: US-BOEHRINGER INGELHEIM GMBH, GERMANY-2008-BP-00415BP

PATIENT
  Sex: Female

DRUGS (5)
  1. CATAPRES [Suspect]
     Indication: HYPERTENSION
     Route: 048
     Dates: start: 20071211, end: 20071224
  2. STARLIX [Concomitant]
     Indication: GLUCOSE TOLERANCE IMPAIRED
  3. LEVOTHYROXINE SODIUM [Concomitant]
     Indication: HYPOTHYROIDISM
  4. BENAZEPRIL HYDROCHLORIDE [Concomitant]
     Indication: HYPERTENSION
     Dates: start: 20050101
  5. COREG [Concomitant]
     Indication: CARDIAC DISORDER

REACTIONS (3)
  - BLOOD PRESSURE FLUCTUATION [None]
  - HEADACHE [None]
  - SOMNOLENCE [None]
